FAERS Safety Report 4690582-7 (Version None)
Quarter: 2005Q2

REPORT INFORMATION
  Report Type: 
  Country: None (occurrence: None)
  Receive Date: 20050615
  Receipt Date: 20050330
  Transmission Date: 20051028
  Serious: Yes (Hospitalization)
  Sender: FDA-Public Use
  Company Number: JP-ROCHE-400860

PATIENT
  Age: 51 Year
  Sex: Male

DRUGS (3)
  1. TAMIFLU [Suspect]
     Route: 048
     Dates: start: 20050322, end: 20050323
  2. PRIMPERAN INJ [Concomitant]
     Dosage: FORMULATION REPORTED AS: ORAL (NOS)
     Route: 048
     Dates: start: 20050322, end: 20050323
  3. BIO-THREE [Concomitant]
     Dosage: FORMULATION REPORTED AS: ORAL (NOS).
     Route: 048
     Dates: start: 20050322, end: 20050323

REACTIONS (1)
  - ILEUS [None]
